FAERS Safety Report 8209498-4 (Version None)
Quarter: 2012Q1

REPORT INFORMATION
  Report Type: 
  Country: None (occurrence: None)
  Receive Date: 20120314
  Receipt Date: 20120305
  Transmission Date: 20120608
  Serious: Yes (Other)
  Sender: FDA-Public Use
  Company Number: US-JNJFOC-20120204933

PATIENT
  Age: 25 Year
  Sex: Female

DRUGS (2)
  1. AZATHIOPRINE [Concomitant]
     Dosage: DURATION ^ABOUT 3 YEARS^
     Dates: end: 20120201
  2. REMICADE [Suspect]
     Indication: COLITIS ULCERATIVE
     Dosage: START DATE WAS ^ABOUT 2 YEARS AGO^
     Route: 042
     Dates: end: 20120201

REACTIONS (1)
  - RENAL CELL CARCINOMA [None]
